FAERS Safety Report 15117469 (Version 1)
Quarter: 2018Q3

REPORT INFORMATION
  Report Type: Other
  Country: AL (occurrence: AL)
  Receive Date: 20180706
  Receipt Date: 20180706
  Transmission Date: 20181010
  Serious: Yes (Life-Threatening)
  Sender: FDA-Public Use
  Company Number: AL-TERSERA THERAPEUTICS, LLC-2051531

PATIENT
  Age: 70 Year
  Sex: Male

DRUGS (2)
  1. BICALUTAMIDE. [Suspect]
     Active Substance: BICALUTAMIDE
     Route: 048
  2. ZOLADEX [Suspect]
     Active Substance: GOSERELIN ACETATE
     Indication: PRODUCT USED FOR UNKNOWN INDICATION
     Route: 058

REACTIONS (2)
  - Torsade de pointes [Recovered/Resolved]
  - Blood electrolytes abnormal [Recovering/Resolving]
